FAERS Safety Report 7853889-8 (Version None)
Quarter: 2011Q4

REPORT INFORMATION
  Report Type: 
  Country: None (occurrence: None)
  Receive Date: 20111026
  Receipt Date: 20111013
  Transmission Date: 20120403
  Serious: Yes (Hospitalization)
  Sender: FDA-Public Use
  Company Number: US-BAYER-201023255NA

PATIENT
  Age: 40 Year
  Sex: Female
  Weight: 117.91 kg

DRUGS (8)
  1. CRESTOR [Concomitant]
     Dosage: UNK
     Dates: start: 20060101
  2. ALBUTEROL INHALER [Concomitant]
     Dosage: 2 PUFF(S), UNK
  3. IBUPROFEN [Concomitant]
     Dosage: UNK
     Dates: start: 20060101, end: 20070101
  4. YAZ [Suspect]
     Indication: MENORRHAGIA
     Dosage: UNK UNK, UNK
     Route: 048
     Dates: start: 20060801, end: 20060901
  5. ELAVIL [Concomitant]
     Dosage: 75 MG, UNK
     Route: 048
  6. TOPAMAX [Concomitant]
     Dosage: 100 MG, UNK
     Route: 048
  7. NAPROXEN [Concomitant]
     Dosage: UNK
     Dates: start: 20060101, end: 20070101
  8. TRAMADOL HCL [Concomitant]
     Dosage: UNK
     Dates: end: 20060601

REACTIONS (2)
  - OEDEMA PERIPHERAL [None]
  - DEEP VEIN THROMBOSIS [None]
